FAERS Safety Report 9789832 (Version 3)
Quarter: 2014Q2

REPORT INFORMATION
  Report Type: Spontaneous
  Country: DE (occurrence: DE)
  Receive Date: 20131231
  Receipt Date: 20140528
  Transmission Date: 20141212
  Serious: Yes (Other)
  Sender: FDA-Public Use
  Company Number: DE-JNJFOC-20131217058

PATIENT
  Age: 71 Year
  Sex: Male
  Weight: 77 kg

DRUGS (9)
  1. XARELTO [Suspect]
     Indication: CEREBROVASCULAR ACCIDENT PROPHYLAXIS
     Route: 048
     Dates: start: 20131203, end: 20131216
  2. XARELTO [Suspect]
     Indication: CEREBROVASCULAR ACCIDENT PROPHYLAXIS
     Route: 048
     Dates: start: 201303, end: 20131203
  3. XARELTO [Suspect]
     Indication: ATRIAL FIBRILLATION
     Route: 048
     Dates: start: 20131203, end: 20131216
  4. XARELTO [Suspect]
     Indication: ATRIAL FIBRILLATION
     Route: 048
     Dates: start: 201303, end: 20131203
  5. LOSARTAN [Concomitant]
     Route: 048
  6. L-THYROXIN [Concomitant]
     Route: 048
  7. CONCOR COR [Concomitant]
     Route: 048
  8. PRAVASTATIN [Concomitant]
     Route: 048
     Dates: start: 20131205
  9. TROMCARDIN [Concomitant]
     Route: 048

REACTIONS (6)
  - Thrombocytopenia [Unknown]
  - Hepatic failure [Unknown]
  - Hepatic function abnormal [Unknown]
  - Epistaxis [Recovering/Resolving]
  - Transaminases increased [Unknown]
  - International normalised ratio decreased [Unknown]
